FAERS Safety Report 6531206-3 (Version None)
Quarter: 2010Q1

REPORT INFORMATION
  Report Type: 
  Country: None (occurrence: None)
  Receive Date: 20100108
  Receipt Date: 20091229
  Transmission Date: 20100710
  Serious: Yes (Other)
  Sender: FDA-Public Use
  Company Number: PHEH2009US18577

PATIENT
  Sex: Female

DRUGS (5)
  1. GLEEVEC [Suspect]
     Indication: CHROMOSOME ANALYSIS ABNORMAL
     Dosage: 400 MG/DAY
  2. GLEEVEC [Suspect]
     Indication: CHRONIC MYELOID LEUKAEMIA
     Dosage: 200 MG
  3. AMBIEN [Concomitant]
     Indication: INSOMNIA
  4. TRIAMTERENE [Concomitant]
     Indication: FLUID RETENTION
  5. VITAMINS [Concomitant]

REACTIONS (7)
  - BLOOD COUNT ABNORMAL [None]
  - DRUG INTOLERANCE [None]
  - EYE SWELLING [None]
  - FLUID RETENTION [None]
  - GLAUCOMA [None]
  - INSOMNIA [None]
  - LIVER DISORDER [None]
